FAERS Safety Report 24738950 (Version 1)
Quarter: 2024Q4

REPORT INFORMATION
  Report Type: Spontaneous
  Country: US (occurrence: US)
  Receive Date: 20241216
  Receipt Date: 20241216
  Transmission Date: 20250115
  Serious: Yes (Other)
  Sender: OTSUKA
  Company Number: US-OTSUKA-2024_031013

PATIENT
  Age: 29 Year
  Sex: Male
  Weight: 108.86 kg

DRUGS (1)
  1. ABILIFY [Suspect]
     Active Substance: ARIPIPRAZOLE
     Indication: Schizoaffective disorder bipolar type
     Dosage: 5 MG, QD
     Route: 065
     Dates: start: 202303

REACTIONS (8)
  - Hallucination [Unknown]
  - Psychotic disorder [Unknown]
  - Thinking abnormal [Unknown]
  - Psychomotor skills impaired [Unknown]
  - Mania [Unknown]
  - Delusion [Unknown]
  - Dyspnoea [Unknown]
  - Product use in unapproved indication [Unknown]

NARRATIVE: CASE EVENT DATE: 20230301
